FAERS Safety Report 12291940 (Version 1)
Quarter: 2016Q2

REPORT INFORMATION
  Report Type: Report from Study
  Country: US (occurrence: US)
  Receive Date: 20160421
  Receipt Date: 20160421
  Transmission Date: 20160815
  Serious: No
  Sender: FDA-Public Use
  Company Number: US-AMGEN-USASL2016036267

PATIENT
  Age: 65 Year
  Sex: Male

DRUGS (1)
  1. REPATHA [Suspect]
     Active Substance: EVOLOCUMAB
     Indication: TYPE V HYPERLIPIDAEMIA
     Dosage: 140 MG, Q2WK
     Route: 065
     Dates: start: 20160215

REACTIONS (12)
  - Asthenia [Unknown]
  - Productive cough [Unknown]
  - Somnolence [Unknown]
  - Rash [Unknown]
  - Pain [Unknown]
  - Libido decreased [Unknown]
  - Dry eye [Unknown]
  - Flatulence [Unknown]
  - Pruritus [Unknown]
  - Muscle spasms [Unknown]
  - Decreased appetite [Unknown]
  - Blood pressure decreased [Unknown]
